FAERS Safety Report 15310643 (Version 2)
Quarter: 2018Q3

REPORT INFORMATION
  Report Type: Report from Study
  Country: MX (occurrence: MX)
  Receive Date: 20180823
  Receipt Date: 20180906
  Transmission Date: 20181010
  Serious: No
  Sender: FDA-Public Use
  Company Number: PHHY2018MX062853

PATIENT
  Age: 52 Year
  Sex: Male
  Weight: 72 kg

DRUGS (7)
  1. ACETAMOL [Concomitant]
     Active Substance: ACETAMINOPHEN
     Indication: ANKYLOSING SPONDYLITIS
     Dosage: 1 DF, Q8H
     Route: 065
     Dates: start: 20180416
  2. COSENTYX [Suspect]
     Active Substance: SECUKINUMAB
     Dosage: 300 MG, UNK
     Route: 058
  3. ARCOXIA [Suspect]
     Active Substance: ETORICOXIB
     Indication: ANKYLOSING SPONDYLITIS
     Dosage: 1 DF, QD
     Route: 065
     Dates: start: 20180416
  4. COSENTYX [Suspect]
     Active Substance: SECUKINUMAB
     Dosage: 300 MG, QMO
     Route: 058
     Dates: start: 20180827
  5. TRAMADOL. [Concomitant]
     Active Substance: TRAMADOL
     Indication: ANKYLOSING SPONDYLITIS
     Dosage: 1 DF, Q8H
     Route: 065
     Dates: start: 20180416
  6. SULFASALAZINE. [Concomitant]
     Active Substance: SULFASALAZINE
     Indication: ANKYLOSING SPONDYLITIS
     Dosage: 2 DF, Q12H
     Route: 065
     Dates: start: 20180416
  7. COSENTYX [Suspect]
     Active Substance: SECUKINUMAB
     Indication: ANKYLOSING SPONDYLITIS
     Dosage: 300 MG, QW (4 COSECUTIVE WEEKS)
     Route: 058
     Dates: end: 20180720

REACTIONS (2)
  - Dermatitis [Recovered/Resolved]
  - Urethritis [Recovered/Resolved]

NARRATIVE: CASE EVENT DATE: 201808
